FAERS Safety Report 8105680-5 (Version None)
Quarter: 2012Q1

REPORT INFORMATION
  Report Type: 
  Country: None (occurrence: None)
  Receive Date: 20120201
  Receipt Date: 20120123
  Transmission Date: 20120608
  Serious: Yes (Other)
  Sender: FDA-Public Use
  Company Number: CA-ELI_LILLY_AND_COMPANY-CA201201006890

PATIENT
  Sex: Male

DRUGS (6)
  1. LEVEMIR [Concomitant]
     Dosage: UNK, EACH EVENING
  2. HUMALOG [Suspect]
     Dosage: 6 U, BID
  3. GABAPENTIN [Concomitant]
     Dosage: UNK
  4. HUMALOG [Suspect]
     Dosage: 8 U, EACH MORNING
  5. DIVALPROEX SODIUM [Concomitant]
     Dosage: UNK
  6. BACLOFEN [Concomitant]
     Dosage: UNK

REACTIONS (3)
  - STIFF PERSON SYNDROME [None]
  - MEMORY IMPAIRMENT [None]
  - MOBILITY DECREASED [None]
